FAERS Safety Report 7054796-3 (Version None)
Quarter: 2010Q4

REPORT INFORMATION
  Report Type: 
  Country: None (occurrence: None)
  Receive Date: 20101021
  Receipt Date: 20101011
  Transmission Date: 20110411
  Serious: Yes (Other)
  Sender: FDA-Public Use
  Company Number: FR-AMGEN GMBH-QUU444591

PATIENT

DRUGS (4)
  1. ARANESP [Suspect]
     Indication: ANAEMIA OF MALIGNANT DISEASE
     Dosage: 300 A?G, QWK
  2. GRANOCYTE [Concomitant]
  3. CHEMOTHERAPY [Concomitant]
  4. RADIATION [Concomitant]

REACTIONS (4)
  - BONE MARROW FAILURE [None]
  - DRUG INEFFECTIVE [None]
  - OEDEMA PERIPHERAL [None]
  - PLATELET COUNT DECREASED [None]
